FAERS Safety Report 5347442-8 (Version None)
Quarter: 2007Q2

REPORT INFORMATION
  Report Type: 
  Country: None (occurrence: None)
  Receive Date: 20070604
  Receipt Date: 20070604
  Transmission Date: 20071010
  Serious: Yes (Disabling, Other)
  Sender: FDA-Public Use
  Company Number: None

PATIENT
  Age: 31 Year
  Sex: Female
  Weight: 75.7507 kg

DRUGS (3)
  1. AMOXICILLIN + CLAVULANATE POTASSIUM [Suspect]
     Indication: SINUSITIS
     Dosage: 875/125MG TWICE DAILY
     Dates: start: 20070506, end: 20070524
  2. METHYLPREGMISALONE SEVEN DAY PACK KAISER PERMANENTE [Suspect]
     Indication: INFLAMMATION
     Dosage: 6 PILLS, 5PILLSETC
     Dates: start: 20070506, end: 20070513
  3. METHYLPREGMISALONE SEVEN DAY PACK KAISER PERMANENTE [Suspect]
     Indication: SINUSITIS
     Dosage: 6 PILLS, 5PILLSETC
     Dates: start: 20070506, end: 20070513

REACTIONS (7)
  - ANOREXIA [None]
  - ANXIETY [None]
  - DEPRESSION [None]
  - NERVE INJURY [None]
  - PARAESTHESIA [None]
  - SENSORY LOSS [None]
  - THINKING ABNORMAL [None]
